FAERS Safety Report 16614265 (Version 2)
Quarter: 2019Q3

REPORT INFORMATION
  Report Type: Spontaneous
  Country: FR (occurrence: FR)
  Receive Date: 20190723
  Receipt Date: 20190809
  Transmission Date: 20191004
  Serious: Yes (Death, Hospitalization)
  Sender: FDA-Public Use
  Company Number: FR-ZYDUS-038802

PATIENT
  Age: 84 Year
  Sex: Female
  Weight: 78.7 kg

DRUGS (10)
  1. AUGMENTIN [Suspect]
     Active Substance: AMOXICILLIN\CLAVULANATE POTASSIUM
     Indication: INFECTION
     Dosage: ()
     Route: 048
  2. FUROSEMIDE. [Concomitant]
     Active Substance: FUROSEMIDE
  3. MACROGOL 4000 [Concomitant]
     Active Substance: POLYETHYLENE GLYCOL 4000
  4. DAFALGAN [Concomitant]
     Active Substance: ACETAMINOPHEN
  5. METOCLOPRAMIDE. [Concomitant]
     Active Substance: METOCLOPRAMIDE
  6. ACUPAN [Concomitant]
     Active Substance: NEFOPAM HYDROCHLORIDE
  7. SERESTA FORTE [Concomitant]
  8. RIVAROXABAN [Concomitant]
     Active Substance: RIVAROXABAN
  9. AMIODARONE [Suspect]
     Active Substance: AMIODARONE
     Indication: ATRIAL FIBRILLATION
     Route: 048
     Dates: start: 201903, end: 20190503
  10. ATORVASTATIN [Suspect]
     Active Substance: ATORVASTATIN
     Indication: PROPHYLAXIS
     Route: 048
     Dates: end: 20190503

REACTIONS (1)
  - Mixed liver injury [Recovering/Resolving]

NARRATIVE: CASE EVENT DATE: 20190430
